FAERS Safety Report 19934752 (Version 1)
Quarter: 2021Q4

REPORT INFORMATION
  Report Type: Report from Study
  Country: US (occurrence: US)
  Receive Date: 20211008
  Receipt Date: 20211008
  Transmission Date: 20220304
  Serious: Yes (Other)
  Sender: FDA-Public Use
  Company Number: US-UCBSA-2021046281

PATIENT
  Sex: Female

DRUGS (5)
  1. LACOSAMIDE [Suspect]
     Active Substance: LACOSAMIDE
     Indication: Seizure
     Dosage: 250 MILLIGRAM, 2X/DAY (BID)
     Route: 048
  2. ZONEGRAN [Concomitant]
     Active Substance: ZONISAMIDE
     Indication: Seizure
     Dosage: 200 MG
     Route: 048
  3. CHOLECALCIFEROL [Concomitant]
     Active Substance: CHOLECALCIFEROL
     Indication: Supplementation therapy
  4. TYLENOL [Concomitant]
     Active Substance: ACETAMINOPHEN
     Indication: Product used for unknown indication
  5. IBUPROFEN [Concomitant]
     Active Substance: IBUPROFEN
     Indication: Product used for unknown indication

REACTIONS (13)
  - Seizure [Not Recovered/Not Resolved]
  - Myoclonus [Unknown]
  - Amnesia [Unknown]
  - Insomnia [Unknown]
  - Fatigue [Unknown]
  - Dry mouth [Unknown]
  - Nocturia [Unknown]
  - Migraine [Unknown]
  - Vitamin D deficiency [Recovering/Resolving]
  - Headache [Unknown]
  - Arthralgia [Unknown]
  - Product prescribing issue [Unknown]
  - Prescribed overdose [Unknown]
